FAERS Safety Report 6014887-2 (Version None)
Quarter: 2008Q4

REPORT INFORMATION
  Report Type: 
  Country: None (occurrence: None)
  Receive Date: 20081219
  Receipt Date: 20081217
  Transmission Date: 20090506
  Serious: Yes (Other)
  Sender: FDA-Public Use
  Company Number: JP-B.I. PHARMACEUTICALS,INC./RIDGEFIELD-2008-BP-17834NB

PATIENT
  Age: 67 Year
  Sex: Male

DRUGS (3)
  1. MICARDIS [Suspect]
     Dosage: 20MG
     Route: 048
     Dates: start: 20081116
  2. FLIVAS [Concomitant]
     Route: 048
  3. EVIPROSTAT [Concomitant]
     Route: 048

REACTIONS (1)
  - PANCYTOPENIA [None]
